FAERS Safety Report 9084772 (Version 1)
Quarter: 2013Q1

REPORT INFORMATION
  Report Type: Spontaneous
  Country: US (occurrence: US)
  Receive Date: 20130218
  Receipt Date: 20130218
  Transmission Date: 20140127
  Serious: Yes (Life-Threatening, Hospitalization, Other)
  Sender: FDA-Public Use
  Company Number: PHEH2012US021635

PATIENT
  Age: 3 Year
  Sex: Female
  Weight: 13.8 kg

DRUGS (5)
  1. EXJADE [Suspect]
     Indication: IRON OVERLOAD
     Dosage: 250 MG DAILY
     Route: 048
     Dates: start: 201111
  2. EXJADE [Suspect]
     Dosage: 500 MG, UNK
     Route: 048
     Dates: end: 20121029
  3. FOLIC ACID [Concomitant]
     Indication: SICKLE CELL ANAEMIA
     Dosage: 250 MG, BID
     Route: 048
  4. HYDROXYUREA [Concomitant]
     Indication: SICKLE CELL ANAEMIA
     Dosage: 300 MG, UNK
     Route: 048
  5. PENICILIN G [Concomitant]
     Indication: SICKLE CELL ANAEMIA
     Dosage: 1 MG, UNK
     Route: 048

REACTIONS (12)
  - Hepatic failure [Recovered/Resolved]
  - Aspartate aminotransferase increased [Unknown]
  - Alanine aminotransferase decreased [Unknown]
  - Hepatic encephalopathy [Recovering/Resolving]
  - Renal failure acute [Recovered/Resolved]
  - Hypersplenism [Recovered/Resolved]
  - Microangiopathy [Recovered/Resolved]
  - Mental disorder [Unknown]
  - Ammonia increased [Unknown]
  - Multi-organ failure [Unknown]
  - Cardiac arrest [Unknown]
  - Convulsion [Unknown]
